FAERS Safety Report 8402848-5 (Version None)
Quarter: 2012Q2

REPORT INFORMATION
  Report Type: 
  Country: None (occurrence: None)
  Receive Date: 20120323
  Receipt Date: 20110318
  Transmission Date: 20120825
  Serious: Yes (Other)
  Sender: FDA-Public Use
  Company Number: 163-21880-11032434

PATIENT
  Age: 51 Year
  Sex: Male
  Weight: 63.5036 kg

DRUGS (6)
  1. ASPIRIN [Concomitant]
  2. CALCIUM CARBONATE [Concomitant]
  3. VITAMIN D [Concomitant]
  4. FENTANYL [Concomitant]
  5. REVLIMID [Suspect]
     Indication: MULTIPLE MYELOMA
     Dosage: 10 MG, X 28 DAYS, PO
     Route: 048
     Dates: start: 20101014
  6. TRAMADOL HCL [Concomitant]

REACTIONS (4)
  - ABDOMINAL PAIN [None]
  - LACTOSE INTOLERANCE [None]
  - DIARRHOEA [None]
  - CONSTIPATION [None]
